FAERS Safety Report 18700930 (Version 1)
Quarter: 2021Q1

REPORT INFORMATION
  Report Type: Spontaneous
  Country: GB (occurrence: GB)
  Receive Date: 20210105
  Receipt Date: 20210105
  Transmission Date: 20210419
  Serious: Yes (Hospitalization, Other)
  Sender: FDA-Public Use
  Company Number: GB-MYLANLABS-2020M1103682

PATIENT
  Age: 58 Year
  Sex: Female

DRUGS (5)
  1. LEVOTHYROXINE. [Concomitant]
     Active Substance: LEVOTHYROXINE
     Indication: HYPOTHYROIDISM
     Dosage: UNK
  2. IRINOTECAN [Suspect]
     Active Substance: IRINOTECAN
     Indication: ADENOCARCINOMA PANCREAS
     Dosage: TWO?WEEK CYCLES
     Dates: start: 202003
  3. FOLINIC ACID [Suspect]
     Active Substance: LEUCOVORIN
     Indication: ADENOCARCINOMA PANCREAS
     Dosage: UNK UNK, CYCLE (TWO?WEEK CYCLES)
     Dates: start: 202003
  4. FLUOROURACIL. [Suspect]
     Active Substance: FLUOROURACIL
     Indication: ADENOCARCINOMA PANCREAS
     Dosage: UNK UNK, CYCLE
     Dates: start: 202003
  5. OXALIPLATIN. [Suspect]
     Active Substance: OXALIPLATIN
     Indication: ADENOCARCINOMA PANCREAS
     Dosage: UNK UNK, CYCLE (TWO?WEEK CYCLES)
     Dates: start: 202003

REACTIONS (9)
  - Acute kidney injury [Unknown]
  - Rash maculo-papular [Recovered/Resolved]
  - Aortitis [Recovered/Resolved]
  - Neutropenic colitis [Unknown]
  - Vasculitis [Recovered/Resolved]
  - Urinary tract infection [Recovered/Resolved]
  - Aortic intramural haematoma [Recovered/Resolved]
  - Klebsiella infection [Recovered/Resolved]
  - Off label use [Unknown]
